FAERS Safety Report 9269363 (Version 1)
Quarter: 2013Q2

REPORT INFORMATION
  Report Type: Report from Study
  Country: CN (occurrence: CN)
  Receive Date: 20130503
  Receipt Date: 20130503
  Transmission Date: 20140414
  Serious: Yes (Other)
  Sender: FDA-Public Use
  Company Number: CN-ROCHE-1217018

PATIENT
  Sex: 0

DRUGS (7)
  1. MYCOPHENOLATE MOFETIL [Suspect]
     Indication: PROPHYLAXIS AGAINST TRANSPLANT REJECTION
     Route: 065
  2. TACROLIMUS [Suspect]
     Indication: PROPHYLAXIS AGAINST TRANSPLANT REJECTION
     Route: 065
  3. CYCLOSPORINE A [Suspect]
     Indication: PROPHYLAXIS AGAINST TRANSPLANT REJECTION
     Route: 065
  4. METHYLPREDNISOLONE [Suspect]
     Indication: PROPHYLAXIS AGAINST TRANSPLANT REJECTION
     Route: 042
  5. METHYLPREDNISOLONE [Suspect]
     Dosage: ON POSTOPERATIVE DAY 1
     Route: 042
  6. METHYLPREDNISOLONE [Suspect]
     Dosage: ON POSTOPERATIVE DAY 2
     Route: 042
  7. METHYLPREDNISOLONE [Suspect]
     Route: 048

REACTIONS (2)
  - Hepatitis B [Recovered/Resolved]
  - Neoplasm recurrence [Unknown]
